FAERS Safety Report 7159948-X (Version None)
Quarter: 2010Q4

REPORT INFORMATION
  Report Type: 
  Country: None (occurrence: None)
  Receive Date: 20101214
  Receipt Date: 20101206
  Transmission Date: 20110411
  Serious: Yes (Other)
  Sender: FDA-Public Use
  Company Number: US-AMGEN-USASP2010008009

PATIENT

DRUGS (5)
  1. ARANESP [Suspect]
     Indication: RENAL FAILURE CHRONIC
  2. EPOGEN [Suspect]
     Indication: RENAL FAILURE CHRONIC
     Dosage: UNK UNK, 3 TIMES/WK
  3. VITAMIN B12                        /00056201/ [Concomitant]
  4. IRON [Concomitant]
  5. ANTIHYPERTENSIVES [Concomitant]

REACTIONS (4)
  - ANAEMIA [None]
  - HAEMORRHAGE [None]
  - RENAL FAILURE CHRONIC [None]
  - VITAMIN B12 DEFICIENCY [None]
